FAERS Safety Report 4949201-4 (Version None)
Quarter: 2006Q1

REPORT INFORMATION
  Report Type: 
  Country: None (occurrence: None)
  Receive Date: 20060321
  Receipt Date: 20051205
  Transmission Date: 20060701
  Serious: Yes (Hospitalization)
  Sender: FDA-Public Use
  Company Number: PHEH2005US13225

PATIENT
  Age: 69 Year
  Sex: Male

DRUGS (7)
  1. GLEEVEC [Suspect]
     Indication: CHRONIC MYELOID LEUKAEMIA
     Dosage: 400 MG, QD
     Route: 048
     Dates: start: 20050322, end: 20050916
  2. GLEEVEC [Suspect]
     Dosage: 800 MG, QD
     Route: 048
     Dates: start: 20050916
  3. DIGOXIN [Concomitant]
  4. CARDURA CR [Concomitant]
  5. SYNTHROID [Concomitant]
  6. LOPRESSOR [Concomitant]
  7. ZOCOR [Concomitant]

REACTIONS (9)
  - ARTERIAL BYPASS OPERATION [None]
  - ASPIRATION PLEURAL CAVITY [None]
  - DIARRHOEA [None]
  - FLATULENCE [None]
  - PLEURAL EFFUSION [None]
  - PLEURITIC PAIN [None]
  - STOMACH DISCOMFORT [None]
  - VASCULAR BYPASS GRAFT [None]
  - VOMITING [None]
